FAERS Safety Report 5574487-5 (Version None)
Quarter: 2007Q4

REPORT INFORMATION
  Report Type: 
  Country: None (occurrence: None)
  Receive Date: 20071227
  Receipt Date: 20071220
  Transmission Date: 20080405
  Serious: Yes (Life-Threatening)
  Sender: FDA-Public Use
  Company Number: SE-ROCHE-538484

PATIENT
  Age: 66 Year
  Sex: Male
  Weight: 85 kg

DRUGS (12)
  1. MYCOPHENOLATE MOFETIL [Suspect]
     Indication: RENAL TRANSPLANT
     Dosage: 1000 MG, BID
     Route: 048
     Dates: start: 20060904
  2. BLINDED RITUXIMAB [Suspect]
     Indication: RENAL TRANSPLANT
     Dosage: 750 MG, UNK
     Route: 042
     Dates: start: 20060904
  3. PREDNISOLONE [Suspect]
     Indication: RENAL TRANSPLANT
     Dosage: 50 MG, BID
     Route: 048
     Dates: start: 20060904
  4. TACROLIMUS [Suspect]
     Indication: RENAL TRANSPLANT
     Dosage: 3 MG, BID
     Route: 048
     Dates: start: 20060905
  5. KETOGAN [Concomitant]
     Indication: DRUG USE FOR UNKNOWN INDICATION
     Dosage: 1 ML, UNK
     Dates: start: 20060904, end: 20060905
  6. KETOGAN [Concomitant]
     Dosage: 0.75 ML, UNK
     Dates: start: 20060904, end: 20060905
  7. SELOKEN [Concomitant]
     Indication: DRUG USE FOR UNKNOWN INDICATION
     Dosage: 7 ML, UNK
     Dates: start: 20060904, end: 20060904
  8. SELOKEN [Concomitant]
     Dosage: 2 ML, UNK
     Dates: start: 20060907, end: 20060907
  9. SELOKEN [Concomitant]
     Dosage: 7.5 ML, UNK
     Dates: start: 20060906, end: 20060906
  10. SOLU-CORTEF [Concomitant]
     Indication: DRUG USE FOR UNKNOWN INDICATION
     Dosage: 200 MG, UNK
     Dates: start: 20060904, end: 20060904
  11. CALCIUM SANDOZ [Concomitant]
     Indication: DRUG USE FOR UNKNOWN INDICATION
     Dosage: 10 ML, UNK
     Dates: start: 20060904, end: 20060904
  12. FURIX [Concomitant]
     Indication: DRUG USE FOR UNKNOWN INDICATION
     Dates: start: 20060904, end: 20060910

REACTIONS (1)
  - ACUTE MYOCARDIAL INFARCTION [None]
